FAERS Safety Report 4573740-1 (Version None)
Quarter: 2005Q1

REPORT INFORMATION
  Report Type: 
  Country: None (occurrence: None)
  Receive Date: 20050203
  Receipt Date: 19951204
  Transmission Date: 20050727
  Serious: Yes (Death)
  Sender: FDA-Public Use
  Company Number: KII-1995-0014943

PATIENT
  Sex: Female

DRUGS (2)
  1. MS CONTIN [Suspect]
  2. MORPHINE SULFATE [Suspect]

REACTIONS (1)
  - DEATH [None]
